FAERS Safety Report 8481674 (Version 10)
Quarter: 2014Q2

REPORT INFORMATION
  Report Type: Spontaneous
  Country: US (occurrence: US)
  Receive Date: 20120329
  Receipt Date: 20140423
  Transmission Date: 20141212
  Serious: Yes (Death, Hospitalization)
  Sender: FDA-Public Use
  Company Number: US-BRISTOL-MYERS SQUIBB COMPANY-16466070

PATIENT
  Age: 78 Year
  Sex: Male
  Weight: 63.49 kg

DRUGS (25)
  1. YERVOY [Suspect]
     Indication: METASTATIC MALIGNANT MELANOMA
     Dosage: ANOTHER TREATMENT ON 18JAN12, 24JAN2012,15FEB12 AND 22FEB12.
     Route: 042
     Dates: start: 20111228
  2. PREDNISONE [Concomitant]
     Route: 048
  3. LIDOCAINE [Concomitant]
     Dosage: 1DF-0.1-0.2ML
     Route: 023
  4. COMBIGAN [Concomitant]
     Dosage: COMBIGAN 0.2-0.5% OPHT DROP
     Route: 047
  5. FOLATE [Concomitant]
     Route: 048
  6. PROTONIX [Concomitant]
     Dosage: TAB
     Route: 048
  7. ZOFRAN [Concomitant]
     Dosage: INJ,Q8H
     Route: 042
  8. TYLENOL [Concomitant]
     Dosage: Q6H
     Route: 048
  9. AMBIEN [Concomitant]
     Dosage: TAB
     Route: 048
  10. MORPHINE [Concomitant]
     Dosage: 1DF=1-2MG
     Route: 042
  11. LIORESAL [Concomitant]
     Dosage: TAB
     Route: 048
  12. TESSALON PERLE [Concomitant]
     Dosage: CAP,?1CAP,TID
     Route: 048
     Dates: start: 20120208
  13. ASPIRIN [Concomitant]
     Dosage: TAB
     Route: 048
  14. BACLOFEN [Concomitant]
     Route: 048
  15. IRON [Concomitant]
     Dosage: ENTERIC COATED TAB
     Route: 048
  16. MULTIVITAMIN [Concomitant]
     Route: 048
  17. VITAMIN E [Concomitant]
     Dosage: CAP?1DF-1000 UNITS
     Route: 048
  18. POTASSIUM CHLORIDE [Concomitant]
     Dosage: POTASSIUM CHLORIDE ,10MEQ,SR CAP
     Route: 048
  19. CALCIUM [Concomitant]
     Dosage: CAP
     Route: 048
  20. ATROVENT [Concomitant]
     Dosage: 1DF= 2PUFFS,Q6H?17MCG
     Route: 055
  21. ALEVE [Concomitant]
     Dosage: TAB
     Route: 048
  22. LOPRESSOR [Concomitant]
     Dosage: FORMULATION-LOPRESSOR 50MG TAB
     Route: 048
  23. PRILOSEC [Concomitant]
     Route: 048
  24. ZOCOR [Concomitant]
     Dosage: TAB,DAILY AT BED TIME
     Route: 048
  25. DYAZIDE [Concomitant]
     Dosage: 1DF=1CAP?FORMULATION-DYAZIDE 37.5-25MG
     Route: 048

REACTIONS (6)
  - Malignant neoplasm progression [Fatal]
  - Pulmonary embolism [Fatal]
  - Colitis [Not Recovered/Not Resolved]
  - Hypophagia [Not Recovered/Not Resolved]
  - Asthenia [Not Recovered/Not Resolved]
  - Atrial fibrillation [Not Recovered/Not Resolved]
